FAERS Safety Report 11068460 (Version 1)
Quarter: 2015Q2

REPORT INFORMATION
  Report Type: Spontaneous
  Country: US (occurrence: None)
  Receive Date: 20150424
  Receipt Date: 20150424
  Transmission Date: 20150821
  Serious: Yes (Other)
  Sender: FDA-Public Use
  Company Number: None

PATIENT
  Age: 71 Year
  Sex: Female
  Weight: 68.04 kg

DRUGS (3)
  1. LOSARTIN [Concomitant]
     Active Substance: LOSARTAN
  2. GLUCOPHAGE [Suspect]
     Active Substance: METFORMIN HYDROCHLORIDE
     Indication: TYPE 2 DIABETES MELLITUS
     Dosage: HALF OF 500MG TABLET
     Route: 048
     Dates: start: 20150123, end: 20150403
  3. METOPOROL [Concomitant]

REACTIONS (5)
  - Anxiety [None]
  - Tremor [None]
  - Blood glucose decreased [None]
  - Muscular weakness [None]
  - Hypertension [None]

NARRATIVE: CASE EVENT DATE: 20150403
